FAERS Safety Report 25575698 (Version 3)
Quarter: 2025Q3

REPORT INFORMATION
  Report Type: Spontaneous
  Country: US (occurrence: US)
  Receive Date: 20250718
  Receipt Date: 20250804
  Transmission Date: 20251020
  Serious: No
  Sender: ABBVIE
  Company Number: US-ABBVIE-6365510

PATIENT
  Age: 56 Year
  Sex: Female
  Weight: 58.966 kg

DRUGS (1)
  1. BOTOX [Suspect]
     Active Substance: ONABOTULINUMTOXINA
     Indication: Skin wrinkling
     Route: 030

REACTIONS (1)
  - Multiple use of single-use product [Not Recovered/Not Resolved]

NARRATIVE: CASE EVENT DATE: 20250707
